FAERS Safety Report 11404045 (Version 2)
Quarter: 2025Q1

REPORT INFORMATION
  Report Type: Spontaneous
  Country: FR (occurrence: FR)
  Receive Date: 20150821
  Receipt Date: 20250113
  Transmission Date: 20250409
  Serious: Yes (Life-Threatening, Hospitalization, Other)
  Sender: MYLAN
  Company Number: US-MYLANLABS-2015M1027148

PATIENT
  Age: 60 Year
  Sex: Male
  Weight: 80 kg

DRUGS (36)
  1. FONDAPARINUX [Suspect]
     Active Substance: FONDAPARINUX
     Indication: Product used for unknown indication
     Dosage: 7.5 MG, QD
     Route: 058
     Dates: start: 20080521, end: 20080612
  2. MYLOTARG [Suspect]
     Active Substance: GEMTUZUMAB OZOGAMICIN
     Indication: Acute myeloid leukaemia
     Route: 042
     Dates: start: 20080425
  3. MYLOTARG [Suspect]
     Active Substance: GEMTUZUMAB OZOGAMICIN
     Route: 042
     Dates: start: 20080704, end: 20080704
  4. CYTARABINE [Suspect]
     Active Substance: CYTARABINE
     Indication: Acute myeloid leukaemia
     Dosage: 396 MG, QD, FROM DAY 1 TO DAY 7 (INDUCTION)
     Route: 042
     Dates: start: 20080425
  5. CYTARABINE [Suspect]
     Active Substance: CYTARABINE
     Route: 042
     Dates: start: 20080704, end: 20080707
  6. CERUBIDINE [Suspect]
     Active Substance: DAUNORUBICIN HYDROCHLORIDE
     Indication: Acute myeloid leukaemia
     Dosage: 118.8 MG, QD, FROM DAY 1 TO DAY 3 (INDUCTION)
     Route: 042
     Dates: start: 20080425
  7. CERUBIDINE [Suspect]
     Active Substance: DAUNORUBICIN HYDROCHLORIDE
     Dosage: 60 MG/M2, QD (DAY 1) (CONSOLIDATION)
     Route: 042
     Dates: start: 20080704, end: 20080704
  8. AMPHOTERICIN B [Suspect]
     Active Substance: AMPHOTERICIN B
     Indication: Product used for unknown indication
     Dosage: 300 MG, QD
     Route: 042
     Dates: start: 20080522, end: 20080609
  9. VANCOMYCIN [Concomitant]
     Active Substance: VANCOMYCIN
     Route: 065
     Dates: start: 20080508, end: 20080525
  10. METRONIDAZOLE [Concomitant]
     Active Substance: METRONIDAZOLE
     Route: 065
     Dates: start: 20080514, end: 20080530
  11. FUROSEMIDE [Concomitant]
     Active Substance: FUROSEMIDE
     Route: 065
     Dates: start: 20080421, end: 20080612
  12. CEFTAZIDIME [Concomitant]
     Active Substance: CEFTAZIDIME
     Route: 065
     Dates: start: 20080515, end: 20080530
  13. PANTOPRAZOLE [Concomitant]
     Active Substance: PANTOPRAZOLE
     Route: 065
     Dates: start: 20080506, end: 20080612
  14. NICARDIPINE [Concomitant]
     Active Substance: NICARDIPINE
     Route: 065
     Dates: start: 20080521
  15. POLARAMINE [Concomitant]
     Active Substance: DEXCHLORPHENIRAMINE MALEATE
     Route: 065
     Dates: start: 20080522, end: 20080608
  16. TRIMEBUTINE [Concomitant]
     Active Substance: TRIMEBUTINE
     Route: 065
     Dates: start: 20080520, end: 20080612
  17. ATENOLOL [Concomitant]
     Active Substance: ATENOLOL
     Route: 065
     Dates: start: 20080421, end: 20080612
  18. ACYCLOVIR [Concomitant]
     Active Substance: ACYCLOVIR
     Route: 065
     Dates: start: 20080507, end: 20080520
  19. AMIODARONE [Concomitant]
     Active Substance: AMIODARONE
     Route: 065
     Dates: start: 20080517, end: 20080522
  20. AMIODARONE [Concomitant]
     Active Substance: AMIODARONE
     Route: 065
     Dates: start: 20080522, end: 20080606
  21. ATARAX [Concomitant]
     Active Substance: HYDROXYZINE HYDROCHLORIDE
     Route: 065
     Dates: start: 20080421
  22. ATARAX [Concomitant]
     Active Substance: HYDROXYZINE HYDROCHLORIDE
     Route: 065
     Dates: start: 20080604, end: 20080610
  23. ESOMEPRAZOLE [Concomitant]
     Active Substance: ESOMEPRAZOLE
     Route: 065
     Dates: start: 20080421, end: 20080719
  24. EBASTINE [Concomitant]
     Active Substance: EBASTINE
     Route: 065
     Dates: start: 20080704
  25. HYDROCHLOROTHIAZIDE\VALSARTAN [Concomitant]
     Active Substance: HYDROCHLOROTHIAZIDE\VALSARTAN
     Route: 065
     Dates: start: 20080703, end: 20080719
  26. NOXAFIL [Concomitant]
     Active Substance: POSACONAZOLE
     Route: 065
     Dates: start: 20080717
  27. Colimycine [Concomitant]
     Route: 065
     Dates: start: 20080422, end: 20080520
  28. TRANEXAMIC ACID [Concomitant]
     Active Substance: TRANEXAMIC ACID
     Route: 065
     Dates: start: 20080511, end: 20080521
  29. VITAMIN K [Concomitant]
     Active Substance: PHYTONADIONE
     Route: 065
     Dates: start: 20080519, end: 20080521
  30. CASPOFUNGIN [Concomitant]
     Active Substance: CASPOFUNGIN
     Route: 065
     Dates: start: 20080513, end: 20080521
  31. SERETIDE [Concomitant]
     Active Substance: FLUTICASONE PROPIONATE\SALMETEROL XINAFOATE
     Route: 065
     Dates: start: 20080421, end: 20080612
  32. BRICANYL [Concomitant]
     Active Substance: TERBUTALINE SULFATE
     Route: 065
     Dates: start: 20080421, end: 20080612
  33. ATROVENT [Concomitant]
     Active Substance: IPRATROPIUM BROMIDE
     Route: 065
     Dates: start: 20080421, end: 20080612
  34. SMECTA [Concomitant]
     Active Substance: MONTMORILLONITE
     Route: 065
     Dates: start: 20080504, end: 20080521
  35. POTASSIUM CHLORIDE [Concomitant]
     Active Substance: POTASSIUM CHLORIDE
     Route: 065
     Dates: start: 20080516, end: 20080610
  36. LEVOCETIRIZINE DIHYDROCHLORIDE [Concomitant]
     Active Substance: LEVOCETIRIZINE DIHYDROCHLORIDE
     Route: 065
     Dates: start: 20080603, end: 20080612

REACTIONS (8)
  - Septic shock [Recovered/Resolved]
  - Bacterial sepsis [Recovered/Resolved]
  - Febrile bone marrow aplasia [Recovered/Resolved]
  - Acute kidney injury [Recovered/Resolved]
  - Deep vein thrombosis [Recovered/Resolved]
  - Drug-induced liver injury [Recovered/Resolved]
  - Melaena [Recovered/Resolved]
  - Respiratory disorder [Recovered/Resolved]

NARRATIVE: CASE EVENT DATE: 20080501
